FAERS Safety Report 8436536-6 (Version None)
Quarter: 2012Q2

REPORT INFORMATION
  Report Type: 
  Country: None (occurrence: None)
  Receive Date: 20120614
  Receipt Date: 20120606
  Transmission Date: 20120825
  Serious: Yes (Hospitalization)
  Sender: FDA-Public Use
  Company Number: SI-GLAXOSMITHKLINE-B0807603A

PATIENT
  Sex: Male

DRUGS (2)
  1. POTIGA [Suspect]
     Indication: EPILEPSY
     Dosage: 300MG PER DAY
     Route: 065
     Dates: start: 20120505, end: 20120606
  2. DEPAKENE [Concomitant]
     Indication: EPILEPSY
     Dosage: 1500MG PER DAY
     Dates: start: 20060101

REACTIONS (3)
  - DIARRHOEA [None]
  - HYPOKALAEMIA [None]
  - DEHYDRATION [None]
